FAERS Safety Report 4675484-4 (Version None)
Quarter: 2005Q2

REPORT INFORMATION
  Report Type: 
  Country: None (occurrence: None)
  Receive Date: 20050527
  Receipt Date: 20050224
  Transmission Date: 20051028
  Serious: No
  Sender: FDA-Public Use
  Company Number: US-BRISTOL-MYERS SQUIBB COMPANY-12905683

PATIENT
  Age: 17 Year
  Sex: Female

DRUGS (3)
  1. ABILIFY [Suspect]
     Route: 048
  2. COGENTIN [Concomitant]
  3. REMERON [Concomitant]

REACTIONS (1)
  - EYE MOVEMENT DISORDER [None]
